FAERS Safety Report 19866078 (Version 1)
Quarter: 2021Q3

REPORT INFORMATION
  Report Type: Spontaneous
  Country: CN (occurrence: CN)
  Receive Date: 20210922
  Receipt Date: 20210922
  Transmission Date: 20211014
  Serious: Yes (Hospitalization, Disabling)
  Sender: FDA-Public Use
  Company Number: CN-JIANGSU HENGRUI MEDICINE CO., LTD.-2118643

PATIENT
  Age: 74 Year
  Sex: Male
  Weight: 55 kg

DRUGS (4)
  1. SODIUM CHLORIDE. [Concomitant]
     Active Substance: SODIUM CHLORIDE
     Route: 041
     Dates: start: 20210309, end: 20210309
  2. DOCETAXEL INJECTION USP, 20 MG/1 ML, 80 MG/4 ML, AND 160 MG/8 ML (20 M [Suspect]
     Active Substance: DOCETAXEL
     Indication: LUNG NEOPLASM MALIGNANT
     Route: 041
     Dates: start: 20210309, end: 20210309
  3. CARBOPLATIN. [Suspect]
     Active Substance: CARBOPLATIN
     Route: 041
     Dates: start: 20210309, end: 20210309
  4. GLUCOSE [Concomitant]
     Active Substance: DEXTROSE
     Route: 041
     Dates: start: 20210309, end: 20210309

REACTIONS (3)
  - Gastrooesophageal reflux disease [Recovering/Resolving]
  - Myelosuppression [Recovering/Resolving]
  - Nausea [Recovering/Resolving]

NARRATIVE: CASE EVENT DATE: 20210310
